FAERS Safety Report 9135406 (Version 1)
Quarter: 2013Q1

REPORT INFORMATION
  Report Type: Spontaneous
  Country: KR (occurrence: None)
  Receive Date: 20130207
  Receipt Date: 20130207
  Transmission Date: 20140127
  Serious: Yes (Death, Other)
  Sender: FDA-Public Use
  Company Number: 2013SP001729

PATIENT
  Age: 39 Year
  Sex: Female

DRUGS (3)
  1. IDARUBICIN [Suspect]
  2. CYTARABINE [Suspect]
  3. FLUDARABINE PHOSPHATE [Suspect]

REACTIONS (5)
  - Aspergillus infection [None]
  - Atelectasis [None]
  - Acute respiratory failure [None]
  - Bone marrow failure [None]
  - Febrile neutropenia [None]
